FAERS Safety Report 25904967 (Version 1)
Quarter: 2025Q4

REPORT INFORMATION
  Report Type: Spontaneous
  Country: US (occurrence: US)
  Receive Date: 20251010
  Receipt Date: 20251010
  Transmission Date: 20260118
  Serious: No
  Sender: BAUSCH AND LOMB
  Company Number: US-BAUSCHBL-2025BNL029485

PATIENT
  Age: 88 Year
  Sex: Female

DRUGS (4)
  1. VYZULTA [Suspect]
     Active Substance: LATANOPROSTENE BUNOD
     Indication: Glaucoma
     Route: 047
  2. VEVYE [Suspect]
     Active Substance: CYCLOSPORINE
     Indication: Product used for unknown indication
  3. IVIZIA [Suspect]
     Active Substance: POVIDONE
     Indication: Product used for unknown indication
  4. BRIMONIDINE TARTRATE [Suspect]
     Active Substance: BRIMONIDINE TARTRATE
     Indication: Product used for unknown indication

REACTIONS (4)
  - Heart rate increased [Unknown]
  - Nasopharyngitis [Unknown]
  - Dry mouth [Unknown]
  - Arthralgia [Unknown]
